FAERS Safety Report 17830892 (Version 1)
Quarter: 2020Q2

REPORT INFORMATION
  Report Type: Spontaneous
  Country: IN (occurrence: US)
  Receive Date: 20200527
  Receipt Date: 20200527
  Transmission Date: 20200714
  Serious: Yes (Life-Threatening, Hospitalization, Other)
  Sender: FDA-Public Use
  Company Number: US-ELI_LILLY_AND_COMPANY-US202005008584

PATIENT
  Age: 51 Year
  Sex: Female

DRUGS (26)
  1. OLANZAPINE. [Suspect]
     Active Substance: OLANZAPINE
     Dosage: ON DAY 1 AS AN WHEN NECESSARY (PRN)
     Route: 065
  2. OLANZAPINE. [Suspect]
     Active Substance: OLANZAPINE
     Dosage: ON DAY 2 TWO ROUNDS
     Route: 048
  3. CLONAZEPAM. [Suspect]
     Active Substance: CLONAZEPAM
     Indication: BIPOLAR DISORDER
     Dosage: AT DAY 1
     Route: 048
  4. CLONAZEPAM. [Suspect]
     Active Substance: CLONAZEPAM
     Dosage: ON DAY 2 DOSE INCREASED TO 1 MG PO
     Route: 048
  5. CHLORPROMAZINE. [Suspect]
     Active Substance: CHLORPROMAZINE
     Indication: AGITATION
     Dosage: TWO ROUNDS ON DAY 2
     Route: 030
  6. CHLORPROMAZINE. [Suspect]
     Active Substance: CHLORPROMAZINE
     Dosage: ON DAY 4 THE DOSE WAS AGAIN CHANGED TO 100 MG PO/IM
     Route: 030
  7. CHLORPROMAZINE. [Suspect]
     Active Substance: CHLORPROMAZINE
     Dosage: ON DAY 4
     Route: 030
  8. OLANZAPINE. [Suspect]
     Active Substance: OLANZAPINE
     Dosage: ON DAY 2 DOSE WAS INCREASED
     Route: 048
  9. LORAZEPAM. [Suspect]
     Active Substance: LORAZEPAM
     Dosage: ON DAY 4
     Route: 030
  10. ZYPREXA [Suspect]
     Active Substance: OLANZAPINE
     Indication: BIPOLAR DISORDER
     Dosage: AS NECESSARY AT DAY 4
     Route: 065
  11. VALPROIC ACID. [Suspect]
     Active Substance: VALPROIC ACID
     Indication: MOOD SWINGS
     Dosage: EVERY NIGHT AT BEDTIME (QHS)
     Route: 048
  12. HALOPERIDOL. [Suspect]
     Active Substance: HALOPERIDOL
     Indication: BIPOLAR DISORDER
     Dosage: TWO ROUNDS ON DAY 2 AND DAY 3
     Route: 065
  13. DIPHENHYDRAMINE. [Suspect]
     Active Substance: DIPHENHYDRAMINE
     Indication: BIPOLAR DISORDER
     Dosage: TWO ROUNDS ON DAY 2 AND DAY 3
     Route: 030
  14. CHLORPROMAZINE. [Suspect]
     Active Substance: CHLORPROMAZINE
     Dosage: ON DAY 4 THE DOSE WAS AGAIN CHANGED TO 100 MG PO/IM
     Route: 048
  15. LORAZEPAM. [Suspect]
     Active Substance: LORAZEPAM
     Dosage: ORAL / INTRAMUSCULAR ON DAY 3
     Route: 030
  16. LORAZEPAM. [Suspect]
     Active Substance: LORAZEPAM
     Dosage: ON DAY 4 THE DOSE WAS CHANGED TO Q8H
     Route: 048
  17. OLANZAPINE. [Suspect]
     Active Substance: OLANZAPINE
     Indication: BIPOLAR DISORDER
     Dosage: ON DAY 1
     Route: 065
  18. LORAZEPAM. [Suspect]
     Active Substance: LORAZEPAM
     Dosage: ORAL / INTRAMUSCULAR ON DAY 3
     Route: 048
  19. VALPROIC ACID. [Suspect]
     Active Substance: VALPROIC ACID
     Dosage: EVERY MORNING (QAM)
     Route: 048
  20. CHLORPROMAZINE. [Suspect]
     Active Substance: CHLORPROMAZINE
     Dosage: ORAL / INTRAMUSCULAR ON DAY 3
     Route: 030
  21. LORAZEPAM. [Suspect]
     Active Substance: LORAZEPAM
     Dosage: ORAL / INTRAMUSCULAR ON DAY 4
     Route: 048
  22. CHLORPROMAZINE. [Suspect]
     Active Substance: CHLORPROMAZINE
     Dosage: ORAL / INTRAMUSCULAR ON DAY 3
     Route: 048
  23. LORAZEPAM. [Suspect]
     Active Substance: LORAZEPAM
     Indication: PRODUCT USED FOR UNKNOWN INDICATION
     Dosage: TWO ROUNDS ON DAY 2 AND DAY 3
     Route: 030
  24. LORAZEPAM. [Suspect]
     Active Substance: LORAZEPAM
     Dosage: ORAL / INTRAMUSCULAR ON DAY 4
     Route: 030
  25. CHLORPROMAZINE. [Suspect]
     Active Substance: CHLORPROMAZINE
     Dosage: ON DAY 4 THE DOSE WAS CHANGED TO PO 200 MG Q8H.
     Route: 048
  26. OSELTAMIVIR [Concomitant]
     Active Substance: OSELTAMIVIR
     Indication: INFLUENZA
     Dosage: UNK, UNKNOWN
     Route: 065

REACTIONS (9)
  - Pneumonia [Unknown]
  - Chronic obstructive pulmonary disease [Recovered/Resolved]
  - Somnolence [Unknown]
  - Pulmonary embolism [Recovered/Resolved]
  - Respiratory failure [Recovered/Resolved]
  - Deep vein thrombosis [Recovered/Resolved]
  - Hypercapnia [Recovered/Resolved]
  - Respiratory distress [Recovered/Resolved]
  - Dysarthria [Unknown]
